FAERS Safety Report 25538271 (Version 1)
Quarter: 2025Q3

REPORT INFORMATION
  Report Type: Spontaneous
  Country: US (occurrence: US)
  Receive Date: 20250710
  Receipt Date: 20250710
  Transmission Date: 20251020
  Serious: Yes (Life-Threatening, Hospitalization)
  Sender: MYLAN
  Company Number: US-MYLANLABS-2025M1057248

PATIENT
  Age: 25 Year
  Sex: Male

DRUGS (10)
  1. GEMCITABINE [Suspect]
     Active Substance: GEMCITABINE
     Indication: Hepatocellular carcinoma
  2. LACTULOSE [Suspect]
     Active Substance: LACTULOSE
     Indication: Hyperammonaemic encephalopathy
  3. OXALIPLATIN [Suspect]
     Active Substance: OXALIPLATIN
     Indication: Hepatocellular carcinoma
  4. RIFAXIMIN [Suspect]
     Active Substance: RIFAXIMIN
     Indication: Hyperammonaemic encephalopathy
  5. ARGININE [Concomitant]
     Active Substance: ARGININE
     Indication: Hyperammonaemic encephalopathy
  6. CITRULLINE [Concomitant]
     Active Substance: CITRULLINE
     Indication: Hyperammonaemic encephalopathy
  7. DEXTROSE [Concomitant]
     Active Substance: DEXTROSE MONOHYDRATE
     Indication: Hyperammonaemic encephalopathy
  8. SODIUM PHENYLACETATE [Concomitant]
     Active Substance: SODIUM PHENYLACETATE
     Indication: Hyperammonaemic encephalopathy
  9. SODIUM BENZOATE [Concomitant]
     Active Substance: SODIUM BENZOATE
     Indication: Hyperammonaemic encephalopathy
  10. NOREPINEPHRINE [Concomitant]
     Active Substance: NOREPINEPHRINE
     Indication: Distributive shock

REACTIONS (1)
  - Drug ineffective [Unknown]
